FAERS Safety Report 20723098 (Version 3)
Quarter: 2022Q3

REPORT INFORMATION
  Report Type: Report from Study
  Country: US (occurrence: US)
  Receive Date: 20220419
  Receipt Date: 20220804
  Transmission Date: 20221027
  Serious: No
  Sender: FDA-Public Use
  Company Number: US-NOVARTISTESTPH-NVSC2022US089574

PATIENT
  Sex: Female

DRUGS (2)
  1. TABRECTA [Suspect]
     Active Substance: CAPMATINIB
     Indication: Product used for unknown indication
     Dosage: 300 MG, BID
     Route: 048
  2. TABRECTA [Suspect]
     Active Substance: CAPMATINIB
     Dosage: 200 MG, BID
     Route: 048
     Dates: start: 20220420, end: 20220518

REACTIONS (1)
  - Back pain [Not Recovered/Not Resolved]
